FAERS Safety Report 10154300 (Version 1)
Quarter: 2014Q2

REPORT INFORMATION
  Report Type: Spontaneous
  Country: GB (occurrence: None)
  Receive Date: 20140502
  Receipt Date: 20140502
  Transmission Date: 20141212
  Serious: Yes (Other)
  Sender: FDA-Public Use
  Company Number: 2014P1003602

PATIENT
  Sex: 0

DRUGS (1)
  1. VALPROATE SODIUM [Suspect]

REACTIONS (1)
  - Renal tubular disorder [None]
